FAERS Safety Report 16191721 (Version 1)
Quarter: 2019Q2

REPORT INFORMATION
  Report Type: Spontaneous
  Country: BR (occurrence: BR)
  Receive Date: 20190412
  Receipt Date: 20190412
  Transmission Date: 20190711
  Serious: Yes (Other)
  Sender: FDA-Public Use
  Company Number: BR-009507513-1904BRA005993

PATIENT
  Age: 38 Year
  Sex: Male

DRUGS (1)
  1. TEMOZOLOMIDE. [Suspect]
     Active Substance: TEMOZOLOMIDE
     Indication: MALIGNANT OLIGODENDROGLIOMA
     Dosage: 1875 MG/CYCLES EVERY 23DAYS (375 MG/DAY)
     Route: 048
     Dates: start: 201409, end: 201507

REACTIONS (2)
  - Treatment failure [Unknown]
  - Malignant oligodendroglioma [Recovering/Resolving]
